FAERS Safety Report 5771921-2 (Version None)
Quarter: 2008Q2

REPORT INFORMATION
  Report Type: 
  Country: None (occurrence: None)
  Receive Date: 20080528
  Receipt Date: 20080513
  Transmission Date: 20081010
  Serious: Yes (Other)
  Sender: FDA-Public Use
  Company Number: AECAN200700146

PATIENT
  Age: 61 Year
  Sex: Female
  Weight: 72.6 kg

DRUGS (4)
  1. GAMUNEX [Suspect]
     Indication: AUTOIMMUNE THROMBOCYTOPENIA
     Dosage: 6 GM;IX; IV
     Route: 042
     Dates: start: 20070605, end: 20070605
  2. GAMUNEX [Suspect]
     Indication: LUNG DISORDER
     Dosage: 6 GM;IX; IV
     Route: 042
     Dates: start: 20070605, end: 20070605
  3. GAMUNEX [Suspect]
     Indication: SYSTEMIC LUPUS ERYTHEMATOSUS
     Dosage: 6 GM;IX; IV
     Route: 042
     Dates: start: 20070605, end: 20070605
  4. GAMUNEX [Suspect]

REACTIONS (11)
  - BODY TEMPERATURE DECREASED [None]
  - CHEST PAIN [None]
  - DYSPNOEA [None]
  - HYPERSENSITIVITY [None]
  - HYPERTENSION [None]
  - LIP OEDEMA [None]
  - NAUSEA [None]
  - PANIC DISORDER [None]
  - PHARYNGEAL OEDEMA [None]
  - TACHYCARDIA [None]
  - VISION BLURRED [None]
